FAERS Safety Report 17800088 (Version 1)
Quarter: 2020Q2

REPORT INFORMATION
  Report Type: Other
  Country: US (occurrence: US)
  Receive Date: 20200518
  Receipt Date: 20200518
  Transmission Date: 20200714
  Serious: No
  Sender: FDA-Public Use
  Company Number: US-BIOVITRUM-2019US1040

PATIENT
  Sex: Female

DRUGS (16)
  1. METOPROLOL. [Concomitant]
     Active Substance: METOPROLOL
  2. LOSARTAN. [Concomitant]
     Active Substance: LOSARTAN
  3. ABILIFY [Concomitant]
     Active Substance: ARIPIPRAZOLE
  4. ZOFRAN [Concomitant]
     Active Substance: ONDANSETRON HYDROCHLORIDE
  5. IMITREX [Concomitant]
     Active Substance: SUMATRIPTAN SUCCINATE
  6. LASIX [Concomitant]
     Active Substance: FUROSEMIDE
  7. TRILIPIX [Concomitant]
     Active Substance: FENOFIBRIC ACID
  8. NOVOLOG [Concomitant]
     Active Substance: INSULIN ASPART
  9. AMBIEN [Concomitant]
     Active Substance: ZOLPIDEM TARTRATE
  10. KINERET [Suspect]
     Active Substance: ANAKINRA
     Route: 058
     Dates: start: 2014, end: 2019
  11. CLONIDINE. [Concomitant]
     Active Substance: CLONIDINE
  12. ZOCOR [Concomitant]
     Active Substance: SIMVASTATIN
  13. LANTUS [Concomitant]
     Active Substance: INSULIN GLARGINE
  14. LAMICTAL [Concomitant]
     Active Substance: LAMOTRIGINE
  15. KLONOPIN [Concomitant]
     Active Substance: CLONAZEPAM
  16. POTASSIUM [Concomitant]
     Active Substance: POTASSIUM

REACTIONS (2)
  - Pain [Unknown]
  - Drug ineffective [Unknown]
